FAERS Safety Report 14735355 (Version 1)
Quarter: 2018Q2

REPORT INFORMATION
  Report Type: Spontaneous
  Country: US (occurrence: US)
  Receive Date: 20180409
  Receipt Date: 20180409
  Transmission Date: 20180711
  Serious: No
  Sender: FDA-Public Use
  Company Number: US-RETROPHIN, INC.-2018RTN00012

PATIENT
  Age: 30 Month
  Sex: Male

DRUGS (1)
  1. CHOLBAM [Suspect]
     Active Substance: CHOLIC ACID

REACTIONS (1)
  - Rash [Unknown]
